FAERS Safety Report 5815990-X (Version None)
Quarter: 2008Q3

REPORT INFORMATION
  Report Type: 
  Country: None (occurrence: None)
  Receive Date: 20080721
  Receipt Date: 20080709
  Transmission Date: 20090109
  Serious: Yes (Other)
  Sender: FDA-Public Use
  Company Number: PHBS2008CN05092

PATIENT
  Age: 25 Year
  Sex: Male

DRUGS (2)
  1. TELBIVUDINE [Suspect]
     Dosage: 600 MG, QD
  2. INTERFERON [Suspect]

REACTIONS (5)
  - ASTHENIA [None]
  - BLOOD CREATINE PHOSPHOKINASE INCREASED [None]
  - HYPOAESTHESIA [None]
  - MYALGIA [None]
  - NEURALGIA [None]
